FAERS Safety Report 10053313 (Version 2)
Quarter: 2014Q2

REPORT INFORMATION
  Report Type: Spontaneous
  Country: US (occurrence: US)
  Receive Date: 20140402
  Receipt Date: 20140418
  Transmission Date: 20141212
  Serious: Yes (Other)
  Sender: FDA-Public Use
  Company Number: US-TEVA-472266USA

PATIENT
  Sex: Female

DRUGS (1)
  1. COPAXONE [Suspect]
     Indication: MULTIPLE SCLEROSIS
     Dates: start: 20081206

REACTIONS (4)
  - Multiple sclerosis relapse [Unknown]
  - Paralysis [Unknown]
  - Hypoaesthesia [Unknown]
  - Dyspnoea [Unknown]
